FAERS Safety Report 7937699-9 (Version None)
Quarter: 2011Q4

REPORT INFORMATION
  Report Type: 
  Country: None (occurrence: None)
  Receive Date: 20111123
  Receipt Date: 20111118
  Transmission Date: 20120403
  Serious: Yes (Hospitalization)
  Sender: FDA-Public Use
  Company Number: US-GLAXOSMITHKLINE-A0853703A

PATIENT
  Age: 45 Year
  Sex: Male
  Weight: 96.4 kg

DRUGS (5)
  1. GLUCOPHAGE [Concomitant]
  2. LIPITOR [Concomitant]
  3. GLIPIZIDE [Concomitant]
  4. RANITIDINE [Concomitant]
  5. AVANDIA [Suspect]
     Indication: DIABETES MELLITUS
     Dosage: 4MG TWICE PER DAY
     Route: 048
     Dates: start: 20020401, end: 20040301

REACTIONS (2)
  - CORONARY ARTERY DISEASE [None]
  - MYOCARDIAL INFARCTION [None]
